FAERS Safety Report 5446098-3 (Version None)
Quarter: 2007Q3

REPORT INFORMATION
  Report Type: 
  Country: None (occurrence: None)
  Receive Date: 20070907
  Receipt Date: 20070831
  Transmission Date: 20080115
  Serious: Yes (Disabling)
  Sender: FDA-Public Use
  Company Number: FR-AVENTIS-200712805FR

PATIENT
  Age: 71 Year
  Sex: Female

DRUGS (1)
  1. TAXOTERE [Suspect]
     Route: 042
     Dates: start: 20050301, end: 20050901

REACTIONS (2)
  - LYMPHOEDEMA [None]
  - MORPHOEA [None]
